FAERS Safety Report 22269993 (Version 1)
Quarter: 2023Q2

REPORT INFORMATION
  Report Type: Spontaneous
  Country: US (occurrence: None)
  Receive Date: 20230428
  Receipt Date: 20230428
  Transmission Date: 20230721
  Serious: Yes (Other)
  Sender: FDA-Public Use
  Company Number: None

PATIENT
  Age: 58 Year
  Sex: Female
  Weight: 136.6 kg

DRUGS (1)
  1. PACLITAXEL [Suspect]
     Active Substance: PACLITAXEL
     Indication: Lung neoplasm malignant
     Dosage: FREQUENCY : ONCE;?
     Route: 041
     Dates: start: 20230421, end: 20230421

REACTIONS (7)
  - Abdominal pain [None]
  - Nausea [None]
  - Chills [None]
  - Seizure [None]
  - Unresponsive to stimuli [None]
  - Hypoxia [None]
  - Infusion related reaction [None]

NARRATIVE: CASE EVENT DATE: 20230421
